FAERS Safety Report 6129247-3 (Version None)
Quarter: 2009Q1

REPORT INFORMATION
  Report Type: 
  Country: None (occurrence: None)
  Receive Date: 20090324
  Receipt Date: 20090311
  Transmission Date: 20090719
  Serious: Yes (Other)
  Sender: FDA-Public Use
  Company Number: US-ROCHE-564809

PATIENT
  Sex: Female

DRUGS (11)
  1. PEG-INTERFERON A-2A (RO 25-8310) [Suspect]
     Indication: HEPATITIS C
     Dosage: FORM REPORTED AS: PRE-FILLED SYRINGE. PATIENT IN WEEK 47 OF THERAPY
     Route: 065
     Dates: start: 20080423
  2. RIBAVIRIN [Suspect]
     Indication: HEPATITIS C
     Route: 065
     Dates: start: 20080423
  3. RIBAVIRIN [Suspect]
     Dosage: DOSAGE: 400 MG IN THE MORNING AND 600 MG IN THE EVENING; PATIENT IN WEEK 47 OF THERAPY
     Route: 065
  4. HEPATITIS B VACCINE [Suspect]
     Indication: HEPATITIS B
     Route: 065
     Dates: start: 20090101
  5. HEPATITIS A VACCINE [Suspect]
     Indication: HEPATITIS A
     Route: 065
     Dates: start: 20090101
  6. PROZAC [Concomitant]
     Indication: DEPRESSION
  7. VISTARIL [Concomitant]
  8. DALMANE [Concomitant]
  9. MULTI-VITAMIN [Concomitant]
  10. LORTAB [Concomitant]
  11. DIOVAN [Concomitant]
     Indication: BLOOD PRESSURE INCREASED
     Dates: start: 20080804

REACTIONS (28)
  - ALOPECIA [None]
  - AMNESIA [None]
  - ANAEMIA [None]
  - ARTHROPATHY [None]
  - BACK PAIN [None]
  - BALANCE DISORDER [None]
  - BLOOD COUNT ABNORMAL [None]
  - BLOOD PRESSURE INCREASED [None]
  - BONE PAIN [None]
  - CATARACT [None]
  - CONTUSION [None]
  - FALL [None]
  - FATIGUE [None]
  - HALLUCINATION [None]
  - HERPES ZOSTER [None]
  - HYPERHIDROSIS [None]
  - INFLUENZA LIKE ILLNESS [None]
  - INJECTION SITE VESICLES [None]
  - INSOMNIA [None]
  - IRRITABILITY [None]
  - NAUSEA [None]
  - OROPHARYNGEAL PAIN [None]
  - PSORIASIS [None]
  - RHINORRHOEA [None]
  - SCRATCH [None]
  - SINUSITIS [None]
  - SKIN LESION [None]
  - VISION BLURRED [None]
